FAERS Safety Report 21346011 (Version 1)
Quarter: 2022Q3

REPORT INFORMATION
  Report Type: Spontaneous
  Country: US (occurrence: US)
  Receive Date: 20220916
  Receipt Date: 20220916
  Transmission Date: 20221027
  Serious: No
  Sender: FDA-Public Use
  Company Number: US-PADAGIS-21US028971

PATIENT

DRUGS (4)
  1. EVAMIST [Suspect]
     Active Substance: ESTRADIOL
     Indication: Menopausal symptoms
     Dosage: 1.53 MG, QD
     Route: 062
     Dates: start: 2014, end: 20210927
  2. EVAMIST [Suspect]
     Active Substance: ESTRADIOL
     Indication: Hormone replacement therapy
     Dosage: UNK, SINGLE
     Route: 062
     Dates: start: 20210927, end: 20210927
  3. EVAMIST [Suspect]
     Active Substance: ESTRADIOL
     Dosage: 1 (UNITS NOT REPORTED) QD, 3 TIMES
     Route: 061
     Dates: start: 20220701
  4. AMLODIPINE [Concomitant]
     Active Substance: AMLODIPINE BESYLATE
     Indication: Hypertension
     Dosage: UNK
     Route: 065

REACTIONS (5)
  - Drug ineffective [Unknown]
  - Incorrect dosage administered [Unknown]
  - Expired product administered [Unknown]
  - Product delivery mechanism issue [Unknown]
  - Product leakage [Unknown]

NARRATIVE: CASE EVENT DATE: 20210927
